FAERS Safety Report 6233192-2 (Version None)
Quarter: 2009Q2

REPORT INFORMATION
  Report Type: 
  Country: None (occurrence: None)
  Receive Date: 20090612
  Receipt Date: 20090601
  Transmission Date: 20091009
  Serious: Yes (Hospitalization)
  Sender: FDA-Public Use
  Company Number: 230698K08USA

PATIENT
  Age: 33 Year
  Sex: Female
  Weight: 59 kg

DRUGS (6)
  1. REBIF [Suspect]
     Indication: MULTIPLE SCLEROSIS
     Dosage: 8.8 MCG, 3 IN 1 WEEKS, SUBCUTANEOUS
     Route: 058
     Dates: start: 20081009, end: 20081001
  2. REBIF [Suspect]
     Indication: MULTIPLE SCLEROSIS
     Dosage: 8.8 MCG, 3 IN 1 WEEKS, SUBCUTANEOUS
     Route: 058
     Dates: start: 20081019
  3. STEROID (GLUCOCORTICOSTEROIDS) [Suspect]
     Dates: start: 20080901, end: 20080901
  4. EFFEXOR XR [Concomitant]
  5. LAMICTAL [Concomitant]
  6. TRAZODONE HCL [Concomitant]

REACTIONS (4)
  - CHEST PAIN [None]
  - LIVER FUNCTION TEST ABNORMAL [None]
  - MYALGIA [None]
  - PNEUMONIA [None]
